FAERS Safety Report 4689044-2 (Version None)
Quarter: 2005Q2

REPORT INFORMATION
  Report Type: 
  Country: None (occurrence: None)
  Receive Date: 20050608
  Receipt Date: 20050325
  Transmission Date: 20051028
  Serious: No
  Sender: FDA-Public Use
  Company Number: 2005-BP-05138BP

PATIENT
  Age: 57 Year
  Sex: Female

DRUGS (15)
  1. SPIRIVA [Suspect]
     Indication: CHRONIC OBSTRUCTIVE PULMONARY DISEASE
     Dosage: 18 MCG (18 MCG, QD), IH
     Route: 055
     Dates: start: 20041201
  2. SPIRIVA [Suspect]
  3. ALBUTEROL [Concomitant]
  4. BENADRYL [Concomitant]
  5. GLUCOPHAGE [Concomitant]
  6. NORVASC [Concomitant]
  7. METOPROLOL TARTRATE [Concomitant]
  8. SYNTHROID [Concomitant]
  9. CLARITIN [Concomitant]
  10. AXID [Concomitant]
  11. LASIX [Concomitant]
  12. LEXAPRO [Concomitant]
  13. ZYPREXA [Concomitant]
  14. XANAX [Concomitant]
  15. TYLENOL [Concomitant]

REACTIONS (2)
  - NASOPHARYNGITIS [None]
  - RESPIRATORY TRACT IRRITATION [None]
